FAERS Safety Report 23986385 (Version 1)
Quarter: 2024Q2

REPORT INFORMATION
  Report Type: Spontaneous
  Country: US (occurrence: None)
  Receive Date: 20240618
  Receipt Date: 20240618
  Transmission Date: 20240716
  Serious: No
  Sender: FDA-Public Use
  Company Number: None

PATIENT
  Age: 77 Year
  Sex: Male
  Weight: 89.36 kg

DRUGS (7)
  1. DARATUMUMAB\HYALURONIDASE-FIHJ [Suspect]
     Active Substance: DARATUMUMAB\HYALURONIDASE-FIHJ
  2. ZYRTEC [Concomitant]
  3. SINGULAIR [Concomitant]
     Active Substance: MONTELUKAST SODIUM
  4. BENADRYL [Concomitant]
  5. TRIAMCINOLONE CREAM [Concomitant]
  6. DEXAMETHASONE [Concomitant]
     Active Substance: DEXAMETHASONE
  7. LENALIDOMIDE [Concomitant]
     Active Substance: LENALIDOMIDE

REACTIONS (3)
  - Rash erythematous [None]
  - Rash pruritic [None]
  - Therapy interrupted [None]

NARRATIVE: CASE EVENT DATE: 20240510
